FAERS Safety Report 6275847-X (Version None)
Quarter: 2009Q3

REPORT INFORMATION
  Report Type: 
  Country: None (occurrence: None)
  Receive Date: 20090721
  Receipt Date: 20090717
  Transmission Date: 20100115
  Serious: Yes (Death)
  Sender: FDA-Public Use
  Company Number: US-AMGEN-US353316

PATIENT
  Sex: Male

DRUGS (3)
  1. NPLATE [Suspect]
     Indication: IDIOPATHIC THROMBOCYTOPENIC PURPURA
     Route: 065
     Dates: start: 20080905, end: 20090603
  2. CORTICOSTEROIDS [Concomitant]
     Dates: start: 20080327
  3. IMMUNOGLOBULINS [Concomitant]
     Dates: start: 20061101

REACTIONS (2)
  - IMMUNOSUPPRESSION [None]
  - PULMONARY SEPSIS [None]
